FAERS Safety Report 5881953-1 (Version None)
Quarter: 2008Q3

REPORT INFORMATION
  Report Type: 
  Country: None (occurrence: None)
  Receive Date: 20080912
  Receipt Date: 20080715
  Transmission Date: 20090109
  Serious: Yes (Hospitalization)
  Sender: FDA-Public Use
  Company Number: US-ABBOTT-08P-163-0463683-00

PATIENT
  Sex: Female
  Weight: 45.4 kg

DRUGS (7)
  1. HUMIRA [Suspect]
     Indication: RHEUMATOID ARTHRITIS
     Route: 058
     Dates: start: 20060101, end: 20070101
  2. HYDROXYCHLOROQUINE [Concomitant]
     Indication: RHEUMATOID ARTHRITIS
     Route: 048
     Dates: start: 20070101
  3. IBANDRONATE SODIUM [Concomitant]
     Indication: BONE DISORDER
     Route: 048
     Dates: start: 20070301
  4. ESCITALOPRAM OXALATE [Concomitant]
     Indication: DRUG USE FOR UNKNOWN INDICATION
     Route: 048
  5. RABEPRAZOLE SODIUM [Concomitant]
     Indication: DRUG USE FOR UNKNOWN INDICATION
     Route: 048
     Dates: start: 20070301
  6. CITRICAL WITH VITAMIN D [Concomitant]
     Indication: VITAMIN SUPPLEMENTATION
     Route: 048
     Dates: start: 20070301
  7. QUINAPRIL [Concomitant]
     Indication: CARDIAC FAILURE
     Route: 048

REACTIONS (4)
  - INTERSTITIAL LUNG DISEASE [None]
  - LABORATORY TEST ABNORMAL [None]
  - PNEUMONIA [None]
  - WEIGHT DECREASED [None]
